FAERS Safety Report 24435227 (Version 1)
Quarter: 2024Q4

REPORT INFORMATION
  Report Type: Report from Study
  Country: US (occurrence: US)
  Receive Date: 20241015
  Receipt Date: 20241015
  Transmission Date: 20250115
  Serious: Yes (Hospitalization)
  Sender: BIOGEN
  Company Number: US-BIOGEN-2024BI01286279

PATIENT
  Age: 63 Year
  Sex: Female

DRUGS (1)
  1. TYSABRI [Suspect]
     Active Substance: NATALIZUMAB
     Indication: Primary progressive multiple sclerosis
     Route: 050
     Dates: start: 20240307, end: 202406

REACTIONS (2)
  - Multiple sclerosis relapse [Unknown]
  - Off label use [Unknown]

NARRATIVE: CASE EVENT DATE: 20240601
